FAERS Safety Report 6582140-4 (Version None)
Quarter: 2010Q1

REPORT INFORMATION
  Report Type: 
  Country: None (occurrence: None)
  Receive Date: 20100212
  Receipt Date: 20100212
  Transmission Date: 20100710
  Serious: Yes (Other)
  Sender: FDA-Public Use
  Company Number: None

PATIENT
  Sex: Male

DRUGS (1)
  1. GEODON [Suspect]
     Indication: SCHIZOPHRENIA
     Dosage: 80MG IN AM; 160 MG IN PM PO
     Route: 048
     Dates: start: 20100111, end: 20100120

REACTIONS (1)
  - LEUKOPENIA [None]
